FAERS Safety Report 6465790-5 (Version None)
Quarter: 2009Q4

REPORT INFORMATION
  Report Type: 
  Country: None (occurrence: None)
  Receive Date: 20091201
  Receipt Date: 20081107
  Transmission Date: 20100525
  Serious: No
  Sender: FDA-Public Use
  Company Number: US-AMGEN-KDL317991

PATIENT
  Sex: Female

DRUGS (17)
  1. ENBREL [Suspect]
     Indication: RHEUMATOID ARTHRITIS
     Route: 058
  2. ENBREL [Suspect]
     Indication: PSORIASIS
  3. ASPIRIN [Concomitant]
     Route: 048
  4. FORTEO [Concomitant]
  5. CALTRATE [Concomitant]
     Route: 048
  6. CARVEDILOL [Concomitant]
     Route: 048
  7. DARVOCET-N 100 [Concomitant]
  8. DICYCLOMINE HYDROCHLORIDE [Concomitant]
     Route: 048
  9. EVISTA [Concomitant]
     Route: 048
  10. FIORICET [Concomitant]
  11. FUROSEMIDE [Concomitant]
     Route: 048
  12. GLYBURIDE [Concomitant]
  13. LIPITOR [Concomitant]
     Route: 048
  14. NEXIUM [Concomitant]
     Route: 048
  15. PROCRIT [Concomitant]
     Indication: RENAL FAILURE CHRONIC
     Route: 058
  16. ULTRAM [Concomitant]
  17. ZETIA [Concomitant]
     Route: 048

REACTIONS (3)
  - SKIN LACERATION [None]
  - SKIN ULCER [None]
  - WOUND SECRETION [None]
